FAERS Safety Report 23737988 (Version 1)
Quarter: 2024Q2

REPORT INFORMATION
  Report Type: Spontaneous
  Country: RU (occurrence: RU)
  Receive Date: 20240412
  Receipt Date: 20240412
  Transmission Date: 20240716
  Serious: Yes (Death, Other)
  Sender: FDA-Public Use
  Company Number: RU-Merck Healthcare KGaA-2024019539

PATIENT
  Age: 58 Year
  Sex: Male

DRUGS (1)
  1. BAVENCIO [Suspect]
     Active Substance: AVELUMAB
     Indication: Bladder cancer
     Dates: start: 20230301

REACTIONS (8)
  - Death [Fatal]
  - Pyelonephritis [Unknown]
  - Hydronephrosis [Unknown]
  - Disease progression [Unknown]
  - Peripheral artery thrombosis [Unknown]
  - Peripheral ischaemia [Unknown]
  - Thrombosis [Unknown]
  - Extremity necrosis [Unknown]

NARRATIVE: CASE EVENT DATE: 20230601
